FAERS Safety Report 9696100 (Version 1)
Quarter: 2013Q4

REPORT INFORMATION
  Report Type: Spontaneous
  Country: JP (occurrence: JP)
  Receive Date: 20131119
  Receipt Date: 20131119
  Transmission Date: 20140711
  Serious: Yes (Other)
  Sender: FDA-Public Use
  Company Number: JP-GLAXOSMITHKLINE-B0944918A

PATIENT
  Age: 9 Decade
  Sex: 0

DRUGS (1)
  1. VOTRIENT 200MG [Suspect]
     Indication: SOFT TISSUE CANCER
     Dosage: 800MG PER DAY
     Route: 048
     Dates: start: 201309

REACTIONS (1)
  - Pancytopenia [Recovering/Resolving]
